FAERS Safety Report 24206214 (Version 1)
Quarter: 2024Q3

REPORT INFORMATION
  Report Type: Spontaneous
  Country: US (occurrence: None)
  Receive Date: 20240813
  Receipt Date: 20240813
  Transmission Date: 20241016
  Serious: Yes (Hospitalization)
  Sender: Public
  Company Number: None

PATIENT
  Age: 67 Year
  Sex: Female

DRUGS (1)
  1. TYMLOS [Suspect]
     Active Substance: ABALOPARATIDE
     Indication: Senile osteoporosis
     Dosage: FREQUENCY : DAILY;?
     Route: 058

REACTIONS (9)
  - Contusion [None]
  - Fall [None]
  - Intentional dose omission [None]
  - Vitamin B12 increased [None]
  - Diarrhoea [None]
  - Drug ineffective [None]
  - Decreased appetite [None]
  - Weight decreased [None]
  - Dysphagia [None]
